FAERS Safety Report 14005099 (Version 1)
Quarter: 2017Q3

REPORT INFORMATION
  Report Type: Spontaneous
  Country: CN (occurrence: CN)
  Receive Date: 20170922
  Receipt Date: 20170922
  Transmission Date: 20171128
  Serious: Yes (Disabling)
  Sender: FDA-Public Use
  Company Number: CN-JNJFOC-20170920571

PATIENT
  Age: 19 Year
  Sex: Female
  Weight: 55 kg

DRUGS (1)
  1. INVEGA [Suspect]
     Active Substance: PALIPERIDONE
     Indication: DELUSION
     Route: 048
     Dates: start: 20161218, end: 20161218

REACTIONS (2)
  - Extrapyramidal disorder [Recovered/Resolved]
  - Diplopia [Unknown]

NARRATIVE: CASE EVENT DATE: 20161218
